APPROVED DRUG PRODUCT: HECTOROL
Active Ingredient: DOXERCALCIFEROL
Strength: 2.5MCG
Dosage Form/Route: CAPSULE;ORAL
Application: N020862 | Product #001
Applicant: SANOFI GENZYME
Approved: Jun 9, 1999 | RLD: Yes | RS: No | Type: DISCN

EXCLUSIVITY:
Code: M-14 | Date: Jun 11, 2028